FAERS Safety Report 7796070-3 (Version None)
Quarter: 2011Q4

REPORT INFORMATION
  Report Type: 
  Country: None (occurrence: None)
  Receive Date: 20111004
  Receipt Date: 20110928
  Transmission Date: 20120403
  Serious: Yes (Other)
  Sender: FDA-Public Use
  Company Number: DE-ELI_LILLY_AND_COMPANY-DE201109001523

PATIENT
  Age: 69 Year
  Sex: Male

DRUGS (6)
  1. RAMIPRIL [Concomitant]
     Indication: HYPERTENSION
  2. BISOPROLOL [Concomitant]
     Indication: HYPERTENSION
  3. AMLODIPINE BESYLATE [Concomitant]
     Indication: HYPERTENSION
  4. ASPIRIN [Concomitant]
     Indication: HYPERLIPIDAEMIA
  5. CIALIS [Suspect]
     Indication: ERECTILE DYSFUNCTION
     Dosage: 20 MG, PRN
     Dates: start: 20090101
  6. SIMVASTATIN [Concomitant]
     Indication: HYPERLIPIDAEMIA

REACTIONS (1)
  - RETINAL ARTERY EMBOLISM [None]
